FAERS Safety Report 18686132 (Version 1)
Quarter: 2020Q4

REPORT INFORMATION
  Report Type: Spontaneous
  Country: JP (occurrence: JP)
  Receive Date: 20201231
  Receipt Date: 20201231
  Transmission Date: 20210114
  Serious: Yes (Other)
  Sender: FDA-Public Use
  Company Number: JP-AMGEN-JPNCT2020211444

PATIENT
  Age: 83 Year
  Sex: Female

DRUGS (2)
  1. PRALIA [Suspect]
     Active Substance: DENOSUMAB
     Indication: PRODUCT USED FOR UNKNOWN INDICATION
     Dosage: 60 MG, ONCE EVERY 6 MO
     Route: 058
  2. PREDONINE [Concomitant]
     Active Substance: PREDNISOLONE
     Dosage: 15 MG, BID
     Route: 048

REACTIONS (2)
  - Fall [Unknown]
  - Femoral neck fracture [Recovered/Resolved]
